FAERS Safety Report 8317461-8 (Version None)
Quarter: 2012Q2

REPORT INFORMATION
  Report Type: 
  Country: None (occurrence: None)
  Receive Date: 20120427
  Receipt Date: 20120417
  Transmission Date: 20120825
  Serious: Yes (Hospitalization, Other)
  Sender: FDA-Public Use
  Company Number: US-ELI_LILLY_AND_COMPANY-US201204005124

PATIENT
  Sex: Female

DRUGS (4)
  1. FORTEO [Suspect]
     Indication: OSTEOPOROSIS
     Dosage: 20 UG, QD
     Route: 065
     Dates: start: 20111130
  2. ZETIA [Concomitant]
  3. FORTEO [Suspect]
     Dosage: 20 UG, QD
     Route: 065
     Dates: end: 20120412
  4. SYNTHROID [Concomitant]

REACTIONS (5)
  - INSOMNIA [None]
  - OROPHARYNGEAL PAIN [None]
  - VESSEL PERFORATION [None]
  - ARTHRALGIA [None]
  - GALLBLADDER OPERATION [None]
